FAERS Safety Report 6887175-X (Version None)
Quarter: 2010Q3

REPORT INFORMATION
  Report Type: 
  Country: None (occurrence: None)
  Receive Date: 20100730
  Receipt Date: 20100720
  Transmission Date: 20110219
  Serious: Yes (Hospitalization, Other)
  Sender: FDA-Public Use
  Company Number: GB-PFIZER INC-2010090765

PATIENT
  Age: 43 Year
  Sex: Male

DRUGS (9)
  1. CYCLOPHOSPHAMIDE [Suspect]
     Dosage: UNK
     Dates: start: 20100326
  2. DOXORUBICIN HCL [Suspect]
     Dosage: UNK
     Dates: start: 20100326
  3. PREDNISOLONE [Suspect]
     Dosage: UNK
     Dates: start: 20100326
  4. RITUXIMAB [Suspect]
     Dosage: UNK
     Dates: start: 20100326
  5. VINCRISTINE [Suspect]
  6. ZAPONEX [Suspect]
     Dosage: 600 MG, 1X/DAY
     Route: 048
     Dates: start: 20070510
  7. AMISULPRIDE [Concomitant]
     Dosage: 400 MG, 1X/DAY
     Route: 048
     Dates: start: 20050101
  8. LANSOPRAZOLE [Concomitant]
     Dosage: 15 MG, 1X/DAY
     Route: 048
  9. VITAMIN B-12 [Concomitant]
     Dosage: UNK
     Route: 030
     Dates: start: 20070101

REACTIONS (3)
  - LEUKOPENIA [None]
  - LYMPHOMA [None]
  - NEUTROPENIA [None]
